FAERS Safety Report 20939013 (Version 1)
Quarter: 2022Q2

REPORT INFORMATION
  Report Type: Spontaneous
  Country: US (occurrence: None)
  Receive Date: 20220608
  Receipt Date: 20220608
  Transmission Date: 20220721
  Serious: Yes (Hospitalization)
  Sender: FDA-Public Use
  Company Number: None

PATIENT
  Age: 60 Year
  Sex: Male

DRUGS (6)
  1. REPATHA [Suspect]
     Active Substance: EVOLOCUMAB
     Indication: Coronary artery disease
     Dosage: INJECT 140 MG UNDER THE SKIN (SUBCUTANEOUS INJECTION)EVERY 14 (FOURTEEN)DAYS
     Route: 058
     Dates: start: 20210127
  2. DEXAMETHASON TAB [Concomitant]
  3. FAMOTIDINE [Concomitant]
     Active Substance: FAMOTIDINE
  4. METHOTREXATE [Concomitant]
     Active Substance: METHOTREXATE
  5. NEO/POLY/HC SOL OTIC [Concomitant]
  6. REPATHA SURE INJ [Concomitant]

REACTIONS (2)
  - Spinal operation [None]
  - Therapy interrupted [None]

NARRATIVE: CASE EVENT DATE: 20220517
